FAERS Safety Report 17756354 (Version 1)
Quarter: 2020Q2

REPORT INFORMATION
  Report Type: Report from Study
  Country: US (occurrence: US)
  Receive Date: 20200507
  Receipt Date: 20200507
  Transmission Date: 20200714
  Serious: No
  Sender: FDA-Public Use
  Company Number: NVSC2017US007892

PATIENT
  Sex: Female

DRUGS (2)
  1. KETOTIFEN [Suspect]
     Active Substance: KETOTIFEN
     Dosage: UNK
  2. CROMOLYN SODIUM. [Suspect]
     Active Substance: CROMOLYN SODIUM
     Dosage: UNK

REACTIONS (1)
  - Treatment failure [Unknown]
